FAERS Safety Report 5580109-X (Version None)
Quarter: 2007Q4

REPORT INFORMATION
  Report Type: 
  Country: None (occurrence: None)
  Receive Date: 20071227
  Receipt Date: 20071227
  Transmission Date: 20080405
  Serious: No
  Sender: FDA-Public Use
  Company Number: None

PATIENT
  Sex: Male
  Weight: 104.3273 kg

DRUGS (2)
  1. CHANTIX [Suspect]
     Indication: SMOKING CESSATION THERAPY
     Dosage: 100 MG  2/DAY PO;  300 MG  2/DAY  PO
     Route: 048
     Dates: start: 20070807, end: 20070814
  2. CHANTIX [Suspect]
     Indication: SMOKING CESSATION THERAPY
     Dosage: 100 MG  2/DAY PO;  300 MG  2/DAY  PO
     Route: 048
     Dates: start: 20070814, end: 20070817

REACTIONS (4)
  - EYE DISORDER [None]
  - OCULAR VASCULAR DISORDER [None]
  - VISUAL ACUITY REDUCED [None]
  - VISUAL FIELD DEFECT [None]
